FAERS Safety Report 9592827 (Version 1)
Quarter: 2013Q4

REPORT INFORMATION
  Report Type: Report from Study
  Country: US (occurrence: US)
  Receive Date: 20131004
  Receipt Date: 20131004
  Transmission Date: 20140711
  Serious: Yes (Death)
  Sender: FDA-Public Use
  Company Number: PHEH2013US020680

PATIENT
  Age: 66 Year
  Sex: Female

DRUGS (13)
  1. GLEEVEC [Suspect]
     Dosage: 400 MG, DAILY
     Route: 048
     Dates: start: 20121012
  2. CLONAZEPAM [Concomitant]
     Dosage: UNK UKN, UNK
  3. GUAIFENESIN [Concomitant]
     Dosage: UNK UKN, UNK
  4. PRILOSEC [Concomitant]
     Dosage: UNK UKN, UNK
  5. ZOLOFT [Concomitant]
     Dosage: UNK UKN, UNK
  6. ASPIRIN [Concomitant]
     Dosage: UNK UKN, UNK
  7. DIGOXIN [Concomitant]
     Dosage: UNK UKN, UNK
  8. RYTHMOL//PROPAFENONE [Concomitant]
     Dosage: UNK UKN, UNK
  9. LIPITOR [Concomitant]
     Dosage: UNK UKN, UNK
  10. AMITIZA [Concomitant]
     Dosage: UNK UKN, UNK
  11. PROVENTIL [Concomitant]
     Dosage: UNK UKN, UNK
  12. ATROVENT [Concomitant]
     Dosage: UNK UKN, UNK
  13. ADVAIR [Concomitant]
     Dosage: UNK UKN, UNK

REACTIONS (1)
  - Death [Fatal]
